FAERS Safety Report 6999488-1 (Version None)
Quarter: 2010Q3

REPORT INFORMATION
  Report Type: 
  Country: None (occurrence: None)
  Receive Date: 20100920
  Receipt Date: 20070719
  Transmission Date: 20110219
  Serious: Yes (Other)
  Sender: FDA-Public Use
  Company Number: US-ASTRAZENECA-2006UW24045

PATIENT
  Sex: Female
  Weight: 49.9 kg

DRUGS (25)
  1. SEROQUEL [Suspect]
     Indication: DEPRESSION
     Route: 048
     Dates: start: 19990101, end: 20030101
  2. SEROQUEL [Suspect]
     Indication: PSYCHOTIC DISORDER
     Route: 048
     Dates: start: 19990101, end: 20030101
  3. SEROQUEL [Suspect]
     Dosage: 400MG TO 600MG
     Route: 048
     Dates: start: 20011127
  4. SEROQUEL [Suspect]
     Dosage: 400MG TO 600MG
     Route: 048
     Dates: start: 20011127
  5. SEROQUEL [Suspect]
     Dosage: 900MG TO 1200MG
     Route: 048
     Dates: start: 20020423
  6. SEROQUEL [Suspect]
     Dosage: 900MG TO 1200MG
     Route: 048
     Dates: start: 20020423
  7. ABILIFY [Concomitant]
  8. AMITRIPTYLINE HCL [Concomitant]
     Indication: DEPRESSION
     Dosage: 150MG TO 200MG
     Route: 048
     Dates: start: 20001012
  9. ZOLOFT [Concomitant]
     Indication: DEPRESSION
     Dosage: 50MG TO 200MG
     Route: 048
     Dates: start: 20001106
  10. ZYPREXA [Concomitant]
     Indication: PSYCHOTIC DISORDER
     Dosage: 5MG TO 40MG
     Route: 048
     Dates: start: 20001106
  11. HYDROXYZINE [Concomitant]
     Indication: ANXIETY
     Dosage: 50MG TO 150MG
     Route: 048
     Dates: start: 20010614
  12. HYDROXYZINE [Concomitant]
     Indication: ADVERSE DRUG REACTION
     Dosage: 50MG TO 150MG
     Route: 048
     Dates: start: 20010614
  13. TRILEPTAL [Concomitant]
     Indication: AFFECTIVE DISORDER
     Dates: start: 20020326
  14. TRAZODONE HCL [Concomitant]
     Indication: INSOMNIA
     Dosage: 50MG TO 100MG
     Route: 048
     Dates: start: 19960307
  15. BUSPAR [Concomitant]
     Indication: ANXIETY
     Dosage: 30MG TO 60MG
     Route: 048
     Dates: start: 20011016
  16. SERZONE [Concomitant]
     Indication: DEPRESSION
     Dosage: 600MG
     Route: 048
     Dates: start: 20010725
  17. SERZONE [Concomitant]
     Indication: ANXIETY
     Dosage: 600MG
     Route: 048
     Dates: start: 20010725
  18. EFFEXOR XR [Concomitant]
     Indication: DEPRESSION
     Dosage: 150MG TO 300MG
     Dates: start: 20011127
  19. EFFEXOR XR [Concomitant]
     Indication: ANXIETY
     Dosage: 150MG TO 300MG
     Dates: start: 20011127
  20. AMBIEN [Concomitant]
     Indication: SLEEP DISORDER
     Dates: start: 20011127
  21. NEURONTIN [Concomitant]
     Indication: MOOD SWINGS
     Dosage: 800MG TO 1600MG
     Dates: start: 20020326
  22. CIMETIDINE [Concomitant]
     Indication: PEPTIC ULCER
     Dosage: 800MG TO 1600MG
     Route: 048
     Dates: start: 19990126
  23. ZANTAC [Concomitant]
     Indication: ADVERSE DRUG REACTION
     Dates: start: 20011018
  24. ZANTAC [Concomitant]
     Indication: PEPTIC ULCER
     Dates: start: 20011018
  25. PAXIL [Concomitant]
     Route: 048
     Dates: start: 19960101, end: 20001012

REACTIONS (1)
  - PANCREATITIS [None]
